FAERS Safety Report 7194409-3 (Version None)
Quarter: 2010Q4

REPORT INFORMATION
  Report Type: 
  Country: None (occurrence: None)
  Receive Date: 20101223
  Receipt Date: 20101220
  Transmission Date: 20110411
  Serious: Yes (Death)
  Sender: FDA-Public Use
  Company Number: GB-ASTRAZENECA-2010SE59821

PATIENT
  Age: 21 Year
  Sex: Male

DRUGS (3)
  1. PROPOFOL [Suspect]
     Indication: SEDATION
     Dosage: AVERAGE DAILY DOSE (4 MG/KG/H) IN INCREASING DOSES
     Route: 042
  2. FENTANYL [Concomitant]
     Indication: SEDATION
  3. MIDAZOLAM HCL [Concomitant]

REACTIONS (1)
  - PROPOFOL INFUSION SYNDROME [None]
